FAERS Safety Report 5695822-3 (Version None)
Quarter: 2008Q2

REPORT INFORMATION
  Report Type: 
  Country: None (occurrence: None)
  Receive Date: 20080407
  Receipt Date: 20080325
  Transmission Date: 20081010
  Serious: Yes (Other)
  Sender: FDA-Public Use
  Company Number: US-AMGEN-QUU271078

PATIENT
  Age: 18 Year
  Sex: Male

DRUGS (5)
  1. NEULASTA [Suspect]
     Indication: CHEMOTHERAPY
  2. ADRIAMYCIN [Concomitant]
  3. BLEOMYCIN SULFATE [Concomitant]
  4. VINBLASTINE SULFATE [Concomitant]
  5. DACARBAZINE [Concomitant]

REACTIONS (1)
  - AUTOIMMUNE THROMBOCYTOPENIA [None]
